FAERS Safety Report 15821800 (Version 2)
Quarter: 2019Q2

REPORT INFORMATION
  Report Type: Spontaneous
  Country: US (occurrence: US)
  Receive Date: 20190114
  Receipt Date: 20190401
  Transmission Date: 20190711
  Serious: No
  Sender: FDA-Public Use
  Company Number: US-VANDA PHARMACEUTICALS, INC-2018TASUS002396

PATIENT
  Age: 45 Year
  Sex: Male

DRUGS (1)
  1. HETLIOZ [Suspect]
     Active Substance: TASIMELTEON
     Indication: NON-24-HOUR SLEEP-WAKE DISORDER
     Dosage: 20 MG, QD
     Route: 048
     Dates: start: 20180511

REACTIONS (5)
  - Rash pruritic [Unknown]
  - Rash erythematous [Unknown]
  - Skin hypertrophy [Unknown]
  - Dry skin [Unknown]
  - Urticaria [Unknown]
